FAERS Safety Report 20053922 (Version 2)
Quarter: 2021Q4

REPORT INFORMATION
  Report Type: Spontaneous
  Country: JP (occurrence: JP)
  Receive Date: 20211110
  Receipt Date: 20211123
  Transmission Date: 20220303
  Serious: Yes (Other)
  Sender: FDA-Public Use
  Company Number: JP-MSD-2111JPN000211JAA

PATIENT
  Age: 53 Year
  Sex: Female

DRUGS (2)
  1. KEYTRUDA [Suspect]
     Active Substance: PEMBROLIZUMAB
     Indication: Renal cancer
     Route: 065
  2. AXITINIB [Concomitant]
     Active Substance: AXITINIB
     Indication: Renal cancer
     Route: 065

REACTIONS (2)
  - Immune-mediated arthritis [Unknown]
  - Adrenocorticotropic hormone deficiency [Unknown]
